FAERS Safety Report 9841608 (Version 1)
Quarter: 2013Q4

REPORT INFORMATION
  Report Type: Spontaneous
  Country: US (occurrence: None)
  Receive Date: 20131223
  Receipt Date: 20131223
  Transmission Date: 20140711
  Serious: Yes (Other)
  Sender: FDA-Public Use
  Company Number: 221946LEO

PATIENT
  Age: 59 Year
  Sex: 0

DRUGS (1)
  1. PICATO [Suspect]
     Indication: ACTINIC KERATOSIS
     Dosage: 1 IN 1 D, TOPICAL
     Route: 061
     Dates: start: 20130515

REACTIONS (5)
  - Anorectal discomfort [None]
  - Application site vesicles [None]
  - Application site swelling [None]
  - Wrong technique in drug usage process [None]
  - Accidental exposure to product [None]
